FAERS Safety Report 6915551-5 (Version None)
Quarter: 2010Q3

REPORT INFORMATION
  Report Type: 
  Country: None (occurrence: None)
  Receive Date: 20100809
  Receipt Date: 20100730
  Transmission Date: 20110219
  Serious: Yes (Hospitalization)
  Sender: FDA-Public Use
  Company Number: JP-ABBOTT-10P-087-0654514-00

PATIENT
  Age: 68 Year
  Sex: Female
  Weight: 53.8 kg

DRUGS (11)
  1. ESTAZOLAM [Suspect]
     Indication: INSOMNIA
     Route: 048
     Dates: start: 20030825, end: 20100602
  2. JUNCHO-TO (HERBAL PREPARATION) [Suspect]
     Indication: CONSTIPATION
     Route: 048
     Dates: start: 20091003, end: 20100519
  3. PARAMIDIN [Suspect]
     Indication: ADJUVANT THERAPY
     Route: 048
     Dates: start: 20030825, end: 20100602
  4. SOLANAX [Suspect]
     Indication: INSOMNIA
     Route: 048
     Dates: start: 20060620, end: 20100602
  5. WARFARIN SODIUM [Concomitant]
     Indication: ANTICOAGULANT THERAPY
     Route: 048
     Dates: start: 20030825
  6. THYRADIN S [Concomitant]
     Indication: HYPOTHYROIDISM
     Route: 048
     Dates: start: 20041129
  7. ASPIRIN [Concomitant]
     Indication: THROMBOSIS PROPHYLAXIS
     Route: 048
     Dates: start: 20060426, end: 20100519
  8. PROCYLIN [Concomitant]
     Indication: ANTICOAGULANT THERAPY
     Route: 048
     Dates: start: 20051213, end: 20100519
  9. ALTAT [Concomitant]
     Indication: HYPERCHLORHYDRIA
     Route: 048
     Dates: start: 20030825, end: 20100519
  10. GOREI-SAN [Concomitant]
     Indication: OEDEMA
     Route: 048
     Dates: start: 20080723, end: 20100519
  11. KEISHIBUKURYOUGAN [Concomitant]
     Indication: MENOPAUSAL SYMPTOMS
     Route: 048
     Dates: start: 20090905, end: 20100519

REACTIONS (3)
  - GALLBLADDER POLYP [None]
  - HEPATIC FUNCTION ABNORMAL [None]
  - HEPATIC STEATOSIS [None]
